FAERS Safety Report 7984656-2 (Version None)
Quarter: 2011Q4

REPORT INFORMATION
  Report Type: 
  Country: None (occurrence: None)
  Receive Date: 20111216
  Receipt Date: 20111211
  Transmission Date: 20120403
  Serious: Yes (Other)
  Sender: FDA-Public Use
  Company Number: IT-JNJFOC-20111206505

PATIENT
  Age: 41 Year
  Sex: Female

DRUGS (1)
  1. HALDOL [Suspect]
     Indication: ILL-DEFINED DISORDER
     Route: 048
     Dates: start: 20111211

REACTIONS (2)
  - SLUGGISHNESS [None]
  - SELF INJURIOUS BEHAVIOUR [None]
